FAERS Safety Report 4284572-6 (Version None)
Quarter: 2004Q1

REPORT INFORMATION
  Report Type: 
  Country: None (occurrence: None)
  Receive Date: 20040130
  Receipt Date: 20040126
  Transmission Date: 20041129
  Serious: Yes (Other)
  Sender: FDA-Public Use
  Company Number: STA-AE-03-MTX-029

PATIENT
  Age: 74 Year
  Sex: Male

DRUGS (13)
  1. METHOTREXATE [Suspect]
     Indication: RHEUMATOID ARTHRITIS
     Dosage: 15 MG 1 X PER WK, ORAL
     Route: 048
     Dates: start: 20020401, end: 20030224
  2. PREDNISONE [Concomitant]
  3. ATENOLOL [Concomitant]
  4. IMURAN (AZTHIOPRINE) [Concomitant]
  5. CELEBREX [Concomitant]
  6. ASPIRIN [Concomitant]
  7. ZOCOR [Concomitant]
  8. PLAQUENIL (HYDROOXYCHLOROQUINE PHOSPHATE) [Concomitant]
  9. CALCIUM (CALCIUM) [Concomitant]
  10. MULTIVITAMINS, PLAIN (MULTIVITAMINS PLAIN) [Concomitant]
  11. FOSAMAX [Concomitant]
  12. FOLIC ACID [Concomitant]
  13. TYLENOL [Concomitant]

REACTIONS (6)
  - ALANINE AMINOTRANSFERASE INCREASED [None]
  - ASPARTATE AMINOTRANSFERASE INCREASED [None]
  - BLOOD ALKALINE PHOSPHATASE INCREASED [None]
  - LIVER FUNCTION TEST ABNORMAL [None]
  - PNEUMONIA [None]
  - PNEUMONITIS [None]
